FAERS Safety Report 5947100-2 (Version None)
Quarter: 2008Q4

REPORT INFORMATION
  Report Type: 
  Country: None (occurrence: None)
  Receive Date: 20081110
  Receipt Date: 20081030
  Transmission Date: 20090506
  Serious: Yes (Hospitalization)
  Sender: FDA-Public Use
  Company Number: CH-SANOFI-SYNTHELABO-A01200813723

PATIENT
  Age: 75 Year
  Sex: Female

DRUGS (15)
  1. SINTROM [Interacting]
     Indication: ATRIAL FIBRILLATION
     Dosage: ACCORDING TO INR
     Route: 048
     Dates: start: 19990101
  2. SINTROM [Interacting]
     Indication: ATRIAL FLUTTER
     Dosage: ACCORDING TO INR
     Route: 048
     Dates: start: 19990101
  3. NEXIUM [Suspect]
     Indication: DRUG USE FOR UNKNOWN INDICATION
     Route: 048
     Dates: start: 20070101
  4. SERETIDE [Concomitant]
     Indication: CHRONIC OBSTRUCTIVE PULMONARY DISEASE
     Route: 055
     Dates: start: 20070101
  5. TOREM [Concomitant]
     Indication: DRUG USE FOR UNKNOWN INDICATION
     Route: 048
     Dates: start: 20070101
  6. EUTHYROX [Concomitant]
     Indication: HYPOTHYROIDISM
     Route: 048
     Dates: start: 20070101
  7. LIQUAEMIN INJ [Interacting]
     Indication: DRUG USE FOR UNKNOWN INDICATION
     Route: 041
     Dates: start: 20080901, end: 20081013
  8. PRAVASTATIN [Concomitant]
     Indication: HYPERCHOLESTEROLAEMIA
     Route: 048
     Dates: start: 20070101
  9. LISINOPRIL [Concomitant]
     Indication: ESSENTIAL HYPERTENSION
     Route: 048
     Dates: start: 20070101
  10. PLAVIX [Interacting]
     Indication: ACUTE MYOCARDIAL INFARCTION
     Route: 048
     Dates: start: 20080916, end: 20081014
  11. PLAVIX [Interacting]
     Indication: STENT PLACEMENT
     Route: 048
     Dates: start: 20080916, end: 20081014
  12. PLAVIX [Interacting]
     Indication: CARDIAC VALVE PROSTHESIS USER
     Route: 048
     Dates: start: 20080916, end: 20081014
  13. DILTIAZEM [Concomitant]
     Indication: DRUG USE FOR UNKNOWN INDICATION
     Dosage: UNK
     Route: 048
  14. SPIRIVA [Concomitant]
     Indication: CHRONIC OBSTRUCTIVE PULMONARY DISEASE
     Route: 055
     Dates: start: 20070101
  15. ASPIRIN [Interacting]
     Indication: DRUG USE FOR UNKNOWN INDICATION
     Route: 048
     Dates: start: 19990101

REACTIONS (3)
  - DRUG INTERACTION [None]
  - GASTROINTESTINAL HAEMORRHAGE [None]
  - HAEMOLYTIC ANAEMIA [None]
